FAERS Safety Report 17861564 (Version 1)
Quarter: 2020Q2

REPORT INFORMATION
  Report Type: Spontaneous
  Country: GB (occurrence: GB)
  Receive Date: 20200604
  Receipt Date: 20200604
  Transmission Date: 20200714
  Serious: Yes (Other)
  Sender: FDA-Public Use
  Company Number: GB-009507513-2006GBR001092

PATIENT
  Age: 88 Year
  Sex: Female

DRUGS (2)
  1. BISOPROLOL [Suspect]
     Active Substance: BISOPROLOL
     Dosage: 2.5 MILLIGRAM
  2. LISINOPRIL. [Suspect]
     Active Substance: LISINOPRIL
     Dosage: 5 MILLIGRAM

REACTIONS (5)
  - Lethargy [Unknown]
  - Hypotension [Unknown]
  - Wrong patient received product [Unknown]
  - Malaise [Unknown]
  - Dehydration [Recovered/Resolved]
